FAERS Safety Report 16725671 (Version 2)
Quarter: 2019Q3

REPORT INFORMATION
  Report Type: Report from Study
  Country: None (occurrence: US)
  Receive Date: 20190821
  Receipt Date: 20190823
  Transmission Date: 20191005
  Serious: Yes (Other)
  Sender: FDA-Public Use
  Company Number: US-ABBVIE-19K-163-2892265-00

PATIENT
  Age: 40 Year
  Sex: Female
  Weight: 58.11 kg

DRUGS (1)
  1. ORILISSA [Suspect]
     Active Substance: ELAGOLIX SODIUM
     Indication: ENDOMETRIOSIS
     Route: 048
     Dates: start: 201901, end: 201903

REACTIONS (3)
  - Abdominal adhesions [Unknown]
  - Drug ineffective [Unknown]
  - Pelvic adhesions [Unknown]

NARRATIVE: CASE EVENT DATE: 2019
